FAERS Safety Report 9163553 (Version 1)
Quarter: 2013Q1

REPORT INFORMATION
  Report Type: Spontaneous
  Country: CA (occurrence: CA)
  Receive Date: 20130314
  Receipt Date: 20130314
  Transmission Date: 20140127
  Serious: Yes (Other)
  Sender: FDA-Public Use
  Company Number: CA-ELI_LILLY_AND_COMPANY-CA201303002243

PATIENT
  Sex: Male

DRUGS (15)
  1. BYETTA [Suspect]
     Dosage: 5 UG, BID
     Dates: start: 20130221
  2. LYRICA [Concomitant]
  3. ACCUPRIL [Concomitant]
  4. CELEXA [Concomitant]
  5. WELLBUTRIN [Concomitant]
  6. TRAZODONE [Concomitant]
  7. DOMPERIDONE [Concomitant]
  8. DETROL [Concomitant]
  9. ISMN [Concomitant]
  10. ASPIRIN [Concomitant]
  11. LIPITOR [Concomitant]
  12. SPIRONOLACTONE [Concomitant]
  13. LIPIDIL [Concomitant]
  14. BISOPROLOL [Concomitant]
  15. LASIX [Concomitant]

REACTIONS (4)
  - Syncope [Not Recovered/Not Resolved]
  - Serotonin syndrome [Unknown]
  - Dizziness [Not Recovered/Not Resolved]
  - Fall [Not Recovered/Not Resolved]
